FAERS Safety Report 20532761 (Version 6)
Quarter: 2024Q3

REPORT INFORMATION
  Report Type: Spontaneous
  Country: US (occurrence: US)
  Receive Date: 20220301
  Receipt Date: 20240715
  Transmission Date: 20241016
  Serious: Yes (Hospitalization, Disabling, Other)
  Sender: ORGANON
  Company Number: US-ORGANON-O2202USA002287

PATIENT
  Sex: Male

DRUGS (3)
  1. SINGULAIR [Suspect]
     Active Substance: MONTELUKAST SODIUM
     Indication: Asthma
     Dosage: TAKE ONE TABLET (T) ORALLY (PO) DAILY (D) FOR 30 DAYS
     Route: 048
     Dates: start: 2012, end: 2018
  2. SINGULAIR [Suspect]
     Active Substance: MONTELUKAST SODIUM
     Dosage: 1 PO
     Route: 048
  3. SINGULAIR [Suspect]
     Active Substance: MONTELUKAST SODIUM
     Indication: Asthma
     Dosage: 5 MG DOSE
     Route: 048
     Dates: start: 2001

REACTIONS (26)
  - Neuropsychological symptoms [Not Recovered/Not Resolved]
  - Major depression [Not Recovered/Not Resolved]
  - Asthma [Not Recovered/Not Resolved]
  - Hypertension [Not Recovered/Not Resolved]
  - Suicide attempt [Unknown]
  - Dysphemia [Not Recovered/Not Resolved]
  - Anxiety [Not Recovered/Not Resolved]
  - Suicidal ideation [Recovered/Resolved]
  - Agitation [Not Recovered/Not Resolved]
  - Hostility [Not Recovered/Not Resolved]
  - Suicidal ideation [Unknown]
  - Anger [Not Recovered/Not Resolved]
  - Affective disorder [Unknown]
  - Helplessness [Unknown]
  - Feeling of despair [Unknown]
  - Aggression [Unknown]
  - Insomnia [Unknown]
  - Mood swings [Unknown]
  - Depressed mood [Unknown]
  - Weight increased [Unknown]
  - Depressive symptom [Unknown]
  - Irritability [Unknown]
  - Otitis media acute [Unknown]
  - Acute sinusitis [Unknown]
  - Cough [Unknown]
  - Obesity [Not Recovered/Not Resolved]
